FAERS Safety Report 12002002 (Version 1)
Quarter: 2016Q1

REPORT INFORMATION
  Report Type: Spontaneous
  Country: US (occurrence: US)
  Receive Date: 20160204
  Receipt Date: 20160204
  Transmission Date: 20160526
  Serious: Yes (Other)
  Sender: FDA-Public Use
  Company Number: US-ASTRAZENECA-2016SE09700

PATIENT
  Sex: Female

DRUGS (1)
  1. FARXIGA [Suspect]
     Active Substance: DAPAGLIFLOZIN PROPANEDIOL
     Route: 048
     Dates: start: 201601

REACTIONS (6)
  - Pyrexia [Unknown]
  - Ketonuria [Unknown]
  - Chills [Unknown]
  - Haematuria [Unknown]
  - White blood cells urine positive [Unknown]
  - Feeling abnormal [Unknown]
